FAERS Safety Report 5872962-7 (Version None)
Quarter: 2008Q3

REPORT INFORMATION
  Report Type: 
  Country: None (occurrence: None)
  Receive Date: 20080905
  Receipt Date: 20080826
  Transmission Date: 20090109
  Serious: Yes (Other)
  Sender: FDA-Public Use
  Company Number: US-PFIZER INC-2008071527

PATIENT
  Sex: Female

DRUGS (2)
  1. LYRICA [Suspect]
  2. NORTRIPTYLINE HCL [Suspect]

REACTIONS (2)
  - DIZZINESS [None]
  - FALL [None]
